FAERS Safety Report 6993668-7 (Version None)
Quarter: 2010Q3

REPORT INFORMATION
  Report Type: 
  Country: None (occurrence: None)
  Receive Date: 20100917
  Receipt Date: 20070605
  Transmission Date: 20110219
  Serious: Yes (Other)
  Sender: FDA-Public Use
  Company Number: US-ASTRAZENECA-2006UW21958

PATIENT
  Age: 49 Year
  Sex: Male
  Weight: 81.6 kg

DRUGS (9)
  1. SEROQUEL [Suspect]
     Route: 048
     Dates: start: 20041119
  2. RISPERDAL [Concomitant]
  3. ZOLOFT [Concomitant]
     Route: 048
     Dates: start: 20041119
  4. WELLBUTRIN [Concomitant]
     Route: 048
     Dates: start: 20041119
  5. VICODIN [Concomitant]
     Route: 048
     Dates: start: 20041119
  6. ALBUTEROL [Concomitant]
     Route: 048
     Dates: start: 20041119
  7. DARVOCET [Concomitant]
     Route: 048
     Dates: start: 20000817
  8. VIOXX [Concomitant]
     Route: 048
     Dates: start: 20000817
  9. PREVACID [Concomitant]
     Route: 048
     Dates: start: 20000817

REACTIONS (2)
  - DIABETES MELLITUS [None]
  - PANCREATITIS [None]
